FAERS Safety Report 7249393-0 (Version None)
Quarter: 2011Q1

REPORT INFORMATION
  Report Type: 
  Country: None (occurrence: None)
  Receive Date: 20110128
  Receipt Date: 20101216
  Transmission Date: 20110831
  Serious: Yes (Hospitalization)
  Sender: FDA-Public Use
  Company Number: FR-BAYER-2010-002314

PATIENT
  Sex: Male

DRUGS (11)
  1. GLUCIDION [Concomitant]
  2. CIFLOX [Suspect]
     Indication: BRONCHITIS
     Dosage: UNK
     Route: 048
     Dates: end: 20100930
  3. LASIX [Concomitant]
  4. THEOSTAT [Concomitant]
  5. DIGITALINE NATIVELLE [Concomitant]
  6. XATRAL [Concomitant]
  7. PREVISCAN [Interacting]
     Dosage: DAILY DOSE 12.5 MG
     Route: 048
     Dates: end: 20100930
  8. ISOPTIN [Concomitant]
  9. SPIRIVA [Concomitant]
  10. KARDEGIC [Concomitant]
  11. AUGMENTIN '125' [Concomitant]

REACTIONS (5)
  - VOMITING [None]
  - FLATULENCE [None]
  - HAEMATOMA [None]
  - SUBILEUS [None]
  - GASTROINTESTINAL MOTILITY DISORDER [None]
